FAERS Safety Report 4902641-1 (Version None)
Quarter: 2006Q1

REPORT INFORMATION
  Report Type: 
  Country: None (occurrence: None)
  Receive Date: 20060207
  Receipt Date: 20060125
  Transmission Date: 20060701
  Serious: Yes (Other)
  Sender: FDA-Public Use
  Company Number: PHBS2006ES01361

PATIENT
  Age: 54 Year
  Sex: Female

DRUGS (5)
  1. ZOMETA [Suspect]
     Indication: BREAST CANCER
     Route: 065
  2. CYCLOPHOSPHAMIDE + DOXORUBICIN + 5-FU [Concomitant]
     Dosage: 7 CYCLES
  3. TAXOL [Concomitant]
  4. HERCEPTIN [Concomitant]
  5. VINORELBINE [Concomitant]
     Dosage: UNK, QW

REACTIONS (4)
  - BONE DISORDER [None]
  - FISTULA [None]
  - OSTEONECROSIS [None]
  - PAIN IN JAW [None]
